FAERS Safety Report 8294430-8 (Version None)
Quarter: 2012Q2

REPORT INFORMATION
  Report Type: 
  Country: None (occurrence: None)
  Receive Date: 20120418
  Receipt Date: 20120410
  Transmission Date: 20120825
  Serious: Yes (Other)
  Sender: FDA-Public Use
  Company Number: PHHY2012BR031510

PATIENT
  Sex: Female
  Weight: 58 kg

DRUGS (5)
  1. DIOVAN [Suspect]
     Indication: PAIN IN EXTREMITY
  2. CYMBALTA [Concomitant]
     Indication: PAIN
     Dosage: 30 MG, QD
     Route: 048
  3. TORAGESIC [Concomitant]
     Indication: PAIN
     Dosage: 10 MG, BID
     Route: 060
  4. DIOVAN [Suspect]
     Indication: PAIN
     Dosage: 160 MG, DAILY
     Route: 048
  5. ULTRACET [Concomitant]
     Indication: PAIN
     Dosage: 20 MG, BID
     Route: 048

REACTIONS (9)
  - ARTHRALGIA [None]
  - FALL [None]
  - NAUSEA [None]
  - SPINAL FRACTURE [None]
  - GAIT DISTURBANCE [None]
  - PAIN IN EXTREMITY [None]
  - PAIN [None]
  - BACK PAIN [None]
  - DECREASED APPETITE [None]
